FAERS Safety Report 4372680-0 (Version None)
Quarter: 2004Q2

REPORT INFORMATION
  Report Type: 
  Country: None (occurrence: None)
  Receive Date: 20040608
  Receipt Date: 20040527
  Transmission Date: 20050107
  Serious: Yes (Other)
  Sender: FDA-Public Use
  Company Number: US-JNJFOC-20040600259

PATIENT
  Sex: Female
  Weight: 121.56 kg

DRUGS (8)
  1. REMICADE [Suspect]
     Indication: RHEUMATOID ARTHRITIS
     Route: 042
  2. SULFASALAZINE [Concomitant]
  3. INSULIN [Concomitant]
  4. ASPIRIN [Concomitant]
  5. PRILOSEC [Concomitant]
  6. TOPROL-XL [Concomitant]
  7. DOXEPIN HCL [Concomitant]
  8. CRESTOR [Concomitant]

REACTIONS (3)
  - CHOLECYSTECTOMY [None]
  - IMPAIRED HEALING [None]
  - LIVER FUNCTION TEST ABNORMAL [None]
